FAERS Safety Report 6238926-9 (Version None)
Quarter: 2009Q2

REPORT INFORMATION
  Report Type: 
  Country: None (occurrence: None)
  Receive Date: 20090617
  Receipt Date: 20090617
  Transmission Date: 20091009
  Serious: Yes (Life-Threatening)
  Sender: FDA-Public Use
  Company Number: None

PATIENT
  Age: 52 Year
  Sex: Male
  Weight: 63.5036 kg

DRUGS (2)
  1. NORDITROPIN [Suspect]
     Indication: HORMONE LEVEL ABNORMAL
     Dosage: 0.35 MG DAILY SQ
     Route: 058
     Dates: start: 20060501, end: 20080501
  2. NORDITROPIN [Suspect]

REACTIONS (26)
  - ALOPECIA [None]
  - AMNESIA [None]
  - ASTHENIA [None]
  - AUTONOMIC NEUROPATHY [None]
  - BALANCE DISORDER [None]
  - BURNING SENSATION [None]
  - DANDRUFF [None]
  - DRY SKIN [None]
  - DYSARTHRIA [None]
  - EPISTAXIS [None]
  - EXPOSURE TO TOXIC AGENT [None]
  - FURUNCLE [None]
  - HAEMATOCHEZIA [None]
  - HEART RATE ABNORMAL [None]
  - HYPOAESTHESIA [None]
  - IMPAIRED WORK ABILITY [None]
  - INSOMNIA [None]
  - LETHARGY [None]
  - MYCOTOXICOSIS [None]
  - PAIN IN EXTREMITY [None]
  - PAIN OF SKIN [None]
  - PRODUCT CONTAMINATION MICROBIAL [None]
  - PRURITUS [None]
  - SKIN BURNING SENSATION [None]
  - TACHYCARDIA [None]
  - VISUAL ACUITY REDUCED [None]
